FAERS Safety Report 14285488 (Version 1)
Quarter: 2017Q4

REPORT INFORMATION
  Report Type: Spontaneous
  Country: US (occurrence: US)
  Receive Date: 20171214
  Receipt Date: 20171214
  Transmission Date: 20180321
  Serious: Yes (Other)
  Sender: FDA-Public Use
  Company Number: None

PATIENT
  Age: 46 Year
  Sex: Female
  Weight: 58.5 kg

DRUGS (4)
  1. TRIAMCINOLONE [Suspect]
     Active Substance: TRIAMCINOLONE
     Indication: ECZEMA
     Route: 061
  2. BENADRYL [Concomitant]
     Active Substance: DIPHENHYDRAMINE HYDROCHLORIDE
  3. MAGNESIUM [Concomitant]
     Active Substance: MAGNESIUM
  4. PROBIOTICS [Concomitant]
     Active Substance: PROBIOTICS NOS

REACTIONS (12)
  - Bedridden [None]
  - Skin exfoliation [None]
  - Urticaria [None]
  - Oedema [None]
  - Skin fissures [None]
  - Red man syndrome [None]
  - Blister [None]
  - Visual impairment [None]
  - Weight decreased [None]
  - Secretion discharge [None]
  - Steroid withdrawal syndrome [None]
  - Alopecia [None]

NARRATIVE: CASE EVENT DATE: 20170702
